FAERS Safety Report 18971966 (Version 1)
Quarter: 2021Q1

REPORT INFORMATION
  Report Type: Spontaneous
  Country: CA (occurrence: CA)
  Receive Date: 20210305
  Receipt Date: 20210305
  Transmission Date: 20210420
  Serious: Yes (Disabling)
  Sender: FDA-Public Use
  Company Number: CA-JNJFOC-20210247985

PATIENT
  Age: 90 Year
  Sex: Female

DRUGS (2)
  1. RISPERDAL [Suspect]
     Active Substance: RISPERIDONE
     Indication: DEMENTIA
     Route: 042
  2. RISPERDAL [Suspect]
     Active Substance: RISPERIDONE
     Indication: BIPOLAR DISORDER

REACTIONS (6)
  - Unresponsive to stimuli [Unknown]
  - Off label use [Unknown]
  - Depressed level of consciousness [Unknown]
  - Musculoskeletal stiffness [Unknown]
  - Blood creatinine increased [Unknown]
  - Incorrect route of product administration [Unknown]
